FAERS Safety Report 6331219-0 (Version None)
Quarter: 2009Q3

REPORT INFORMATION
  Report Type: 
  Country: None (occurrence: None)
  Receive Date: 20090827
  Receipt Date: 20090717
  Transmission Date: 20100115
  Serious: Yes (Hospitalization)
  Sender: FDA-Public Use
  Company Number: GB-MERCK-0509GBR00095

PATIENT
  Age: 56 Year
  Sex: Male
  Weight: 79 kg

DRUGS (14)
  1. ZOCOR [Suspect]
     Indication: MYOCARDIAL ISCHAEMIA
     Route: 048
     Dates: end: 20050707
  2. ZOCOR [Suspect]
     Route: 048
     Dates: start: 20041001
  3. ZOCOR [Suspect]
     Route: 048
     Dates: start: 20050708
  4. ASPIRIN [Concomitant]
     Indication: MYOCARDIAL ISCHAEMIA
     Route: 065
     Dates: start: 20050618, end: 20050706
  5. AMLODIPINE BESYLATE [Concomitant]
     Indication: MYOCARDIAL ISCHAEMIA
     Route: 065
     Dates: start: 20050618, end: 20050706
  6. FERROUS SULFATE [Concomitant]
     Indication: MINERAL SUPPLEMENTATION
     Route: 065
  7. LANSOPRAZOLE [Concomitant]
     Route: 065
  8. CLARITHROMYCIN [Suspect]
     Indication: LOWER RESPIRATORY TRACT INFECTION
     Route: 048
     Dates: start: 20050619, end: 20050630
  9. CEFTRIAXONE SODIUM [Concomitant]
     Indication: PNEUMONIA
     Route: 042
  10. AMIODARONE [Suspect]
     Indication: SUPRAVENTRICULAR TACHYCARDIA
     Route: 042
     Dates: start: 20050622, end: 20050622
  11. AMIODARONE [Suspect]
     Route: 048
     Dates: start: 20050623, end: 20050629
  12. AMIODARONE [Suspect]
     Route: 048
     Dates: start: 20050630, end: 20050706
  13. AMIODARONE [Suspect]
     Route: 048
     Dates: start: 20050707
  14. ADENOSINE [Concomitant]
     Indication: SUPRAVENTRICULAR TACHYCARDIA
     Route: 042

REACTIONS (6)
  - DRUG INTERACTION [None]
  - LIVER FUNCTION TEST ABNORMAL [None]
  - MYOSITIS [None]
  - PERICARDIAL EFFUSION [None]
  - PLEURAL EFFUSION [None]
  - PULMONARY EMBOLISM [None]
